FAERS Safety Report 7282253-8 (Version None)
Quarter: 2011Q1

REPORT INFORMATION
  Report Type: 
  Country: None (occurrence: None)
  Receive Date: 20110209
  Receipt Date: 20110204
  Transmission Date: 20110831
  Serious: Yes (Other)
  Sender: FDA-Public Use
  Company Number: US-PFIZER INC-2010139528

PATIENT
  Sex: Male
  Weight: 81.633 kg

DRUGS (12)
  1. XANAX [Suspect]
     Dosage: 4 MG/DAY
  2. LISINOPRIL [Suspect]
     Indication: BLOOD CHOLESTEROL INCREASED
  3. NORTRIPTYLINE HYDROCHLORIDE [Concomitant]
     Indication: PAIN
     Dosage: UNK, DAILY
     Route: 048
     Dates: start: 20100101, end: 20100101
  4. XANAX [Suspect]
     Dosage: 2.5 MG, UNK
  5. CELEBREX [Suspect]
     Indication: INTERVERTEBRAL DISC DEGENERATION
  6. ZOLOFT [Suspect]
     Indication: DEPRESSION
     Dosage: 200 MG, 1X/DAY
     Route: 048
  7. XANAX [Suspect]
     Indication: INSOMNIA
     Dosage: 1.5 MG, UNK
  8. CELEBREX [Suspect]
     Indication: PAIN
     Dosage: 200MG DAILY
     Route: 048
     Dates: start: 20060101
  9. LISINOPRIL [Suspect]
     Indication: BLOOD PRESSURE
     Dosage: UNK
     Route: 048
     Dates: start: 20100101, end: 20100101
  10. XANAX [Suspect]
     Dosage: 2 MG, UNK
  11. HYDROCODONE BITARTRATE AND IBUPROFEN [Concomitant]
     Indication: PAIN
     Dosage: 10-650 MG, 4X/DAY
     Route: 048
     Dates: start: 20000101
  12. XANAX [Suspect]
     Indication: ANXIETY
     Dosage: 1 MG, UNK
     Dates: start: 19840101

REACTIONS (14)
  - DRUG INEFFECTIVE [None]
  - FATIGUE [None]
  - DEPENDENCE [None]
  - DIZZINESS [None]
  - HEARING IMPAIRED [None]
  - PAIN [None]
  - FEELING ABNORMAL [None]
  - INJURY [None]
  - INCORRECT DOSE ADMINISTERED [None]
  - VISUAL IMPAIRMENT [None]
  - BLOOD CHOLESTEROL INCREASED [None]
  - BLOOD TRIGLYCERIDES INCREASED [None]
  - BLOOD THYROID STIMULATING HORMONE INCREASED [None]
  - HERNIA [None]
